FAERS Safety Report 11837673 (Version 1)
Quarter: 2015Q4

REPORT INFORMATION
  Report Type: Spontaneous
  Country: CN (occurrence: CN)
  Receive Date: 20151215
  Receipt Date: 20151215
  Transmission Date: 20160305
  Serious: Yes (Death)
  Sender: FDA-Public Use
  Company Number: CN-BAXTER-2015BAX066365

PATIENT
  Age: 2 Day
  Sex: Male
  Weight: 3.09 kg

DRUGS (8)
  1. 5% GLUCOSE  INJECTION [Suspect]
     Active Substance: DEXTROSE
     Indication: NUTRITIONAL SUPPLEMENTATION
     Route: 042
     Dates: start: 20150424, end: 20150427
  2. 0.9% SODIUM CHLORIDE INJECTION [Suspect]
     Active Substance: SODIUM CHLORIDE
     Indication: ELECTROLYTE SUBSTITUTION THERAPY
     Route: 041
     Dates: start: 20150424, end: 20150427
  3. PEDIATRIC COMPOUND AMINO ACIDS INJECTION (19AA-I) [Suspect]
     Active Substance: AMINO ACIDS
     Indication: NUTRITIONAL SUPPLEMENTATION
     Route: 042
     Dates: start: 20150424, end: 20150427
  4. WATER-SOLUBLE VITAMINS FOR INJECTION [Suspect]
     Active Substance: VITAMINS
     Indication: VITAMIN SUPPLEMENTATION
     Route: 042
     Dates: start: 20150425, end: 20150427
  5. 5% GLUCOSE  INJECTION [Suspect]
     Active Substance: DEXTROSE
     Route: 042
     Dates: start: 20150424, end: 20150427
  6. POTASSIUM CHLORIDE. [Suspect]
     Active Substance: POTASSIUM CHLORIDE
     Indication: ELECTROLYTE SUBSTITUTION THERAPY
     Route: 042
     Dates: start: 20150427, end: 20150427
  7. MEDIUM AND LONG CHAIN FAT EMULSION INJECTION (C8-24) [Suspect]
     Active Substance: GLYCERIN\MEDIUM-CHAIN TRIGLYCERIDES\PHOSPHOLIPID\SOYBEAN OIL
     Indication: NUTRITIONAL SUPPLEMENTATION
     Route: 042
     Dates: start: 20150425, end: 20150427
  8. LIPID-SOLUBLE VITAMINS INJECTION (II) [Suspect]
     Active Substance: VITAMINS
     Indication: VITAMIN SUPPLEMENTATION
     Route: 042
     Dates: start: 20150425, end: 20150427

REACTIONS (1)
  - Cardiac arrest [Fatal]

NARRATIVE: CASE EVENT DATE: 20150427
